FAERS Safety Report 7090155-5 (Version None)
Quarter: 2010Q4

REPORT INFORMATION
  Report Type: 
  Country: None (occurrence: None)
  Receive Date: 20101104
  Receipt Date: 20101104
  Transmission Date: 20110411
  Serious: Yes (Other)
  Sender: FDA-Public Use
  Company Number: None

PATIENT
  Sex: Female
  Weight: 102.0593 kg

DRUGS (1)
  1. VENLAFAXINE HCL [Suspect]
     Indication: DEPRESSION
     Dosage: 300MG DAILY ORAL
     Route: 048
     Dates: start: 20100701, end: 20100801

REACTIONS (2)
  - CONDITION AGGRAVATED [None]
  - DEPRESSION [None]
